FAERS Safety Report 6643604-8 (Version None)
Quarter: 2010Q1

REPORT INFORMATION
  Report Type: 
  Country: None (occurrence: None)
  Receive Date: 20100320
  Receipt Date: 20100310
  Transmission Date: 20100710
  Serious: Yes (Other)
  Sender: FDA-Public Use
  Company Number: US-JNJFOC-20100303626

PATIENT
  Sex: Male
  Weight: 104.33 kg

DRUGS (8)
  1. FENTANYL-100 [Suspect]
     Indication: PANCREATITIS
     Route: 062
  2. GLYBURIDE [Suspect]
     Indication: DIABETES MELLITUS
     Route: 048
  3. METFORMIN HYDROCHLORIDE [Suspect]
     Indication: DIABETES MELLITUS
     Route: 048
  4. DILAUDID [Concomitant]
     Indication: PAIN
     Route: 048
  5. TOPROL-XL [Concomitant]
     Indication: HYPERTENSION
     Route: 048
  6. NEURONTIN [Concomitant]
     Indication: PAIN
     Route: 048
  7. NEURONTIN [Concomitant]
     Route: 048
  8. ALBUTEROL [Concomitant]
     Indication: ASTHMA
     Route: 055

REACTIONS (4)
  - DIABETES MELLITUS [None]
  - HYPERHIDROSIS [None]
  - POLLAKIURIA [None]
  - WRONG TECHNIQUE IN DRUG USAGE PROCESS [None]
